FAERS Safety Report 15452123 (Version 1)
Quarter: 2018Q4

REPORT INFORMATION
  Report Type: Spontaneous
  Country: US (occurrence: US)
  Receive Date: 20181001
  Receipt Date: 20181001
  Transmission Date: 20190204
  Serious: No
  Sender: FDA-Public Use
  Company Number: US-NEOS THERAPEUTICS, LP-2018NEO00094

PATIENT
  Age: 11 Year
  Sex: Male
  Weight: 43.08 kg

DRUGS (5)
  1. GUANFACINE. [Concomitant]
     Active Substance: GUANFACINE
     Dosage: 1 MG, 2X/DAY
     Dates: start: 20180801
  2. GUANFACINE. [Concomitant]
     Active Substance: GUANFACINE
     Dosage: 0.5 MG, 1X/DAY IN THE AM
     Dates: start: 201505, end: 20180801
  3. VAYARIN [Concomitant]
     Active Substance: DOCONEXENT\ICOSAPENT\PHOSPHATIDYL SERINE
     Dosage: 2 CAPSULES, 1X/DAY
     Dates: start: 201702
  4. COTEMPLA XR-ODT [Suspect]
     Active Substance: METHYLPHENIDATE
     Indication: ATTENTION DEFICIT/HYPERACTIVITY DISORDER
     Dosage: 8.6 MG, 1X/DAY AT 8 AM
     Dates: start: 20180202, end: 20180801
  5. GUANFACINE. [Concomitant]
     Active Substance: GUANFACINE
     Dosage: 1 MG, 1X/DAY AT BEDTIME
     Dates: start: 201505, end: 20180801

REACTIONS (1)
  - Trichotillomania [Not Recovered/Not Resolved]

NARRATIVE: CASE EVENT DATE: 201804
